FAERS Safety Report 19768518 (Version 2)
Quarter: 2021Q3

REPORT INFORMATION
  Report Type: Report from Study
  Country: DE (occurrence: DE)
  Receive Date: 20210831
  Receipt Date: 20210914
  Transmission Date: 20211014
  Serious: Yes (Hospitalization)
  Sender: FDA-Public Use
  Company Number: DE-EISAI MEDICAL RESEARCH-EC-2021-098619

PATIENT
  Age: 51 Year
  Sex: Male
  Weight: 88 kg

DRUGS (11)
  1. PEMBROLIZUMAB. [Suspect]
     Active Substance: PEMBROLIZUMAB
     Route: 041
     Dates: start: 20210430, end: 20210430
  2. LYRICA [Concomitant]
     Active Substance: PREGABALIN
     Dates: start: 201006
  3. L THYROXIN [Concomitant]
     Active Substance: LEVOTHYROXINE SODIUM
     Dates: start: 202102
  4. FRAXIPARINA [Concomitant]
     Active Substance: NADROPARIN CALCIUM
     Dates: start: 20200131
  5. LENVATINIB [Suspect]
     Active Substance: LENVATINIB
     Indication: HEPATOCELLULAR CARCINOMA
     Dosage: STARTING DOSE AT 12 MG, QD; FLUCTUATED DOSAGE
     Route: 048
     Dates: start: 20200213, end: 20210519
  6. PEMBROLIZUMAB. [Suspect]
     Active Substance: PEMBROLIZUMAB
     Indication: HEPATOCELLULAR CARCINOMA
     Route: 041
     Dates: start: 20200213, end: 20210409
  7. APONAL [Concomitant]
     Active Substance: DOXEPIN HYDROCHLORIDE
     Dates: start: 201305
  8. PANTOPRAZOLE [Concomitant]
     Active Substance: PANTOPRAZOLE
     Dates: start: 200906
  9. CARVEDILOL. [Concomitant]
     Active Substance: CARVEDILOL
     Dates: start: 20200217
  10. RACECADOTRIL [Concomitant]
     Active Substance: RACECADOTRIL
     Dates: start: 20200910
  11. LENVATINIB [Suspect]
     Active Substance: LENVATINIB
     Route: 048
     Dates: start: 20210520, end: 20210520

REACTIONS (1)
  - Colitis [Recovered/Resolved]

NARRATIVE: CASE EVENT DATE: 20210819
